FAERS Safety Report 5011141-2 (Version None)
Quarter: 2006Q2

REPORT INFORMATION
  Report Type: 
  Country: None (occurrence: None)
  Receive Date: 20060523
  Receipt Date: 20060523
  Transmission Date: 20061013
  Serious: Yes (Hospitalization)
  Sender: FDA-Public Use
  Company Number: None

PATIENT
  Age: 77 Year
  Sex: Female

DRUGS (1)
  1. LEVOFLOXACIN [Suspect]
     Dosage: 500 PO X 3 DOSES  (THERAPY DATES: FRI-SAT-SUN)
     Route: 048

REACTIONS (10)
  - BLOOD CREATININE INCREASED [None]
  - BLOOD POTASSIUM DECREASED [None]
  - BLOOD PRESSURE DIASTOLIC DECREASED [None]
  - DIARRHOEA [None]
  - ERYTHEMA MULTIFORME [None]
  - PNEUMONIA [None]
  - RASH [None]
  - RESPIRATORY RATE INCREASED [None]
  - SKIN LESION [None]
  - WHITE BLOOD CELL COUNT DECREASED [None]
